FAERS Safety Report 21920555 (Version 2)
Quarter: 2023Q1

REPORT INFORMATION
  Report Type: Spontaneous
  Country: CN (occurrence: CN)
  Receive Date: 20230127
  Receipt Date: 20230206
  Transmission Date: 20230418
  Serious: Yes (Hospitalization)
  Sender: FDA-Public Use
  Company Number: CN-002147023-NVSC2022CN115117

PATIENT
  Sex: Male
  Weight: 66 kg

DRUGS (3)
  1. OXCARBAZEPINE [Suspect]
     Active Substance: OXCARBAZEPINE
     Indication: Epilepsy
     Dosage: 0.30 G, BID
     Route: 045
     Dates: start: 20210206, end: 20210218
  2. OXCARBAZEPINE [Suspect]
     Active Substance: OXCARBAZEPINE
     Dosage: 0.45 G, BID
     Route: 045
     Dates: start: 20210218, end: 20210221
  3. VALPROATE SODIUM [Concomitant]
     Active Substance: VALPROATE SODIUM
     Indication: Epilepsy
     Dosage: 0.40 G, TID
     Route: 045
     Dates: start: 20210209, end: 20210218

REACTIONS (4)
  - Rash [Recovering/Resolving]
  - Erythema [Recovered/Resolved]
  - Concomitant disease aggravated [Recovered/Resolved]
  - Drug ineffective [Unknown]

NARRATIVE: CASE EVENT DATE: 20210209
